FAERS Safety Report 24901083 (Version 1)
Quarter: 2025Q1

REPORT INFORMATION
  Report Type: Spontaneous
  Country: AT (occurrence: AT)
  Receive Date: 20250129
  Receipt Date: 20250129
  Transmission Date: 20250409
  Serious: Yes (Other)
  Sender: UCB
  Company Number: AT-UCBSA-2025004825

PATIENT
  Sex: Male

DRUGS (1)
  1. NEUPRO [Suspect]
     Active Substance: ROTIGOTINE
     Indication: Parkinson^s disease
     Route: 062

REACTIONS (4)
  - Parkinson^s disease [Unknown]
  - Skin irritation [Unknown]
  - Product adhesion issue [Unknown]
  - Product administered at inappropriate site [Unknown]
